FAERS Safety Report 5330051-4 (Version None)
Quarter: 2007Q2

REPORT INFORMATION
  Report Type: 
  Country: None (occurrence: None)
  Receive Date: 20070521
  Receipt Date: 20070515
  Transmission Date: 20071010
  Serious: Yes (Hospitalization)
  Sender: FDA-Public Use
  Company Number: US-ELI_LILLY_AND_COMPANY-US200705003917

PATIENT
  Age: 48 Year
  Sex: Female
  Weight: 109.75 kg

DRUGS (2)
  1. ZYPREXA [Suspect]
     Indication: BIPOLAR DISORDER
     Dosage: 10 MG, 4/D
     Dates: start: 19980101, end: 20040501
  2. DOXEPIN HCL [Concomitant]
     Dates: start: 19880101

REACTIONS (5)
  - DIABETES MELLITUS NON-INSULIN-DEPENDENT [None]
  - HYPERGLYCAEMIA [None]
  - MYOCARDIAL INFARCTION [None]
  - MYOCARDIAL ISCHAEMIA [None]
  - PRESCRIBED OVERDOSE [None]
